FAERS Safety Report 8646459 (Version 4)
Quarter: 2013Q2

REPORT INFORMATION
  Report Type: Spontaneous
  Country: FR (occurrence: FR)
  Receive Date: 20120702
  Receipt Date: 20130513
  Transmission Date: 20140414
  Serious: Yes (Hospitalization)
  Sender: FDA-Public Use
  Company Number: FR-PFIZER INC-2012152882

PATIENT
  Age: 21 Year
  Sex: Female

DRUGS (1)
  1. ADEPAL [Suspect]
     Indication: POLYCYSTIC OVARIES
     Dosage: 1 DF, 1X/DAY (ETHINYL ESTRADIOL 30-40UG/ LEVONORGESTREL 150-200UG)
     Route: 048
     Dates: start: 20120207, end: 20120504

REACTIONS (3)
  - Ischaemic stroke [Recovered/Resolved]
  - Cerebral venous thrombosis [Recovered/Resolved]
  - Loss of consciousness [Unknown]
